FAERS Safety Report 13165520 (Version 1)
Quarter: 2017Q1

REPORT INFORMATION
  Report Type: Spontaneous
  Country: US (occurrence: US)
  Receive Date: 20170131
  Receipt Date: 20170131
  Transmission Date: 20170428
  Serious: No
  Sender: FDA-Public Use
  Company Number: US-TAIHO ONCOLOGY INC-EU-2017-00126

PATIENT
  Age: 64 Year
  Sex: Male

DRUGS (1)
  1. LONSURF [Suspect]
     Active Substance: TIPIRACIL HYDROCHLORIDE\TRIFLURIDINE
     Indication: RECTAL CANCER
     Route: 048
     Dates: start: 20161220, end: 20170116

REACTIONS (3)
  - Adverse drug reaction [Unknown]
  - Drug ineffective [Unknown]
  - Confusional state [Unknown]

NARRATIVE: CASE EVENT DATE: 20170116
